FAERS Safety Report 4966402-X (Version None)
Quarter: 2006Q2

REPORT INFORMATION
  Report Type: 
  Country: None (occurrence: None)
  Receive Date: 20060407
  Receipt Date: 20050609
  Transmission Date: 20061013
  Serious: Yes (Hospitalization, Disabling)
  Sender: FDA-Public Use
  Company Number: US-MERCK-0506USA01495

PATIENT
  Age: 55 Year
  Sex: Male
  Weight: 95 kg

DRUGS (6)
  1. VIOXX [Suspect]
     Indication: INTERVERTEBRAL DISC DEGENERATION
     Route: 048
     Dates: start: 20000801, end: 20041006
  2. VIOXX [Suspect]
     Route: 048
     Dates: start: 20000420, end: 20000801
  3. PRILOSEC [Concomitant]
     Route: 048
  4. VERAPAMIL [Concomitant]
     Route: 048
  5. VERAPAMIL [Concomitant]
     Route: 048
  6. LIBRIUM [Concomitant]
     Route: 048

REACTIONS (10)
  - ACUTE MYOCARDIAL INFARCTION [None]
  - ANXIETY [None]
  - CHEST PAIN [None]
  - CORONARY ARTERY DISEASE [None]
  - DEPRESSION [None]
  - DILATATION VENTRICULAR [None]
  - GLUCOSE TOLERANCE IMPAIRED [None]
  - HYPOTENSION [None]
  - INTERVERTEBRAL DISC PROTRUSION [None]
  - SUPRAVENTRICULAR TACHYCARDIA [None]
